FAERS Safety Report 5935317-2 (Version None)
Quarter: 2008Q4

REPORT INFORMATION
  Report Type: 
  Country: None (occurrence: None)
  Receive Date: 20081030
  Receipt Date: 20081027
  Transmission Date: 20090506
  Serious: Yes (Hospitalization)
  Sender: FDA-Public Use
  Company Number: FR-BRISTOL-MYERS SQUIBB COMPANY-14352611

PATIENT
  Age: 53 Year
  Sex: Male
  Weight: 71 kg

DRUGS (5)
  1. REYATAZ [Suspect]
     Indication: HIV INFECTION
     Dosage: DECREASED TO 200MG/D ON 10-OCT-2008.
     Route: 048
     Dates: start: 20050112
  2. NORVIR [Suspect]
     Route: 048
     Dates: start: 20050112
  3. TRUVADA [Concomitant]
     Dosage: 1 DOSAGE FORM = 1 TAB
     Route: 048
     Dates: start: 20050112
  4. TRAMADOL HCL [Concomitant]
     Indication: POLYNEUROPATHY
     Route: 048
     Dates: start: 20050201
  5. RIVOTRIL [Concomitant]
     Indication: POLYNEUROPATHY
     Route: 048
     Dates: start: 20050201

REACTIONS (2)
  - DRUG LEVEL INCREASED [None]
  - RENAL COLIC [None]
